FAERS Safety Report 4498107-6 (Version None)
Quarter: 2004Q4

REPORT INFORMATION
  Report Type: 
  Country: None (occurrence: None)
  Receive Date: 20041110
  Receipt Date: 20041102
  Transmission Date: 20050328
  Serious: Yes (Death, Life-Threatening, Other)
  Sender: FDA-Public Use
  Company Number: US-MERCK-0411USA00759

PATIENT
  Age: 75 Year
  Sex: Male

DRUGS (8)
  1. DECADRON [Suspect]
     Indication: HEPATOMEGALY
     Route: 048
  2. DECADRON [Suspect]
     Route: 048
  3. DECADRON [Suspect]
     Indication: OEDEMA PERIPHERAL
     Route: 048
  4. DECADRON [Suspect]
     Route: 048
  5. HYDROMORPHONE HYDROCHLORIDE [Concomitant]
     Indication: PAIN
     Route: 048
  6. HYDROMORPHONE HYDROCHLORIDE [Concomitant]
     Route: 048
  7. HYDROMORPHONE HYDROCHLORIDE [Concomitant]
     Route: 042
  8. WARFARIN [Concomitant]
     Route: 065

REACTIONS (7)
  - ADRENOCORTICAL INSUFFICIENCY ACUTE [None]
  - COLON CANCER METASTATIC [None]
  - COMA [None]
  - DEATH [None]
  - DYSPHAGIA [None]
  - LETHARGY [None]
  - SHOCK [None]
